FAERS Safety Report 8483909-1 (Version None)
Quarter: 2012Q2

REPORT INFORMATION
  Report Type: 
  Country: None (occurrence: None)
  Receive Date: 20120402
  Receipt Date: 20110422
  Transmission Date: 20120825
  Serious: Yes (Hospitalization)
  Sender: FDA-Public Use
  Company Number: A-US2011-47909

PATIENT
  Age: 25 Year
  Sex: Female

DRUGS (3)
  1. EPOPROSTENOL SODIUM [Suspect]
     Indication: PULMONARY ARTERIAL HYPERTENSION
     Dosage: 30 NG/KG, PER MIN, INTRAVENOUS
     Route: 042
  2. TRACLEER [Concomitant]
  3. COUMADIN [Concomitant]

REACTIONS (1)
  - MEDICAL DEVICE COMPLICATION [None]
